FAERS Safety Report 12174529 (Version 2)
Quarter: 2016Q2

REPORT INFORMATION
  Report Type: Report from Study
  Country: PL (occurrence: PL)
  Receive Date: 20160311
  Receipt Date: 20160405
  Transmission Date: 20160815
  Serious: Yes (Other)
  Sender: FDA-Public Use
  Company Number: PHHY2016PL028964

PATIENT
  Age: 43 Year
  Sex: Female

DRUGS (1)
  1. TASIGNA [Suspect]
     Active Substance: NILOTINIB
     Indication: CHRONIC MYELOID LEUKAEMIA
     Dosage: 400 MG, BID
     Route: 065

REACTIONS (26)
  - Vomiting [Recovered/Resolved]
  - Pain [Recovered/Resolved]
  - Asthenia [Unknown]
  - Infection susceptibility increased [Unknown]
  - Nausea [Recovered/Resolved]
  - Dizziness [Recovered/Resolved]
  - Alopecia [Unknown]
  - Hyperhidrosis [Unknown]
  - Onychoclasis [Unknown]
  - Rhinorrhoea [Unknown]
  - Muscle spasms [Unknown]
  - Abdominal pain [Recovered/Resolved]
  - Diarrhoea [Recovered/Resolved]
  - Contusion [Unknown]
  - Skin discolouration [Unknown]
  - Gastrointestinal disorder [Recovered/Resolved]
  - Dyspepsia [Recovered/Resolved]
  - Eructation [Recovered/Resolved]
  - Breath odour [Recovered/Resolved]
  - Dyspnoea [Unknown]
  - Body temperature increased [Unknown]
  - Somnolence [Unknown]
  - Acne [Recovered/Resolved]
  - Abscess [Recovered/Resolved]
  - Nasopharyngitis [Unknown]
  - Palpitations [Unknown]
